FAERS Safety Report 16933628 (Version 1)
Quarter: 2019Q4

REPORT INFORMATION
  Report Type: Spontaneous
  Country: GB (occurrence: GB)
  Receive Date: 20191018
  Receipt Date: 20191018
  Transmission Date: 20200122
  Serious: Yes (Hospitalization, Other)
  Sender: FDA-Public Use
  Company Number: GB-SA-2019SA285932

PATIENT
  Age: 66 Year
  Sex: Male

DRUGS (9)
  1. BISOPROLOL FUMARATE. [Concomitant]
     Active Substance: BISOPROLOL FUMARATE
     Dosage: 5 MG, QD
     Route: 065
     Dates: start: 20151204
  2. AMLODIPINE [Concomitant]
     Active Substance: AMLODIPINE BESYLATE
     Dosage: 5 MG, QD
     Route: 065
     Dates: start: 20151120
  3. STRIVIT D3 [Concomitant]
     Dosage: 800 IU, QD
     Route: 065
     Dates: start: 20170428
  4. RAMIPRIL. [Suspect]
     Active Substance: RAMIPRIL
     Indication: PRODUCT USED FOR UNKNOWN INDICATION
     Dosage: 2.5 MG, QD
     Route: 048
     Dates: start: 20190416
  5. LEFLUNOMIDE. [Suspect]
     Active Substance: LEFLUNOMIDE
     Indication: PRODUCT USED FOR UNKNOWN INDICATION
     Dosage: 20 MG, QD AS DIRECTED.
     Route: 065
     Dates: start: 20190520, end: 20190520
  6. OMEPRAZOLE. [Concomitant]
     Active Substance: OMEPRAZOLE
     Dosage: 20 MG, QD
     Route: 065
     Dates: start: 20160309
  7. ALLOPURINOL. [Concomitant]
     Active Substance: ALLOPURINOL
     Dosage: 300 MG, QD
     Route: 065
     Dates: start: 20190325
  8. PARACETAMOL [Concomitant]
     Active Substance: ACETAMINOPHEN
     Dosage: EVERY FOUR TO SIX HOURS (MAXIMUM OF 8 IN 24 HOURS).
     Route: 065
     Dates: start: 20150323
  9. LEVOTHYROXINE. [Concomitant]
     Active Substance: LEVOTHYROXINE
     Dosage: 100 UG, QD
     Route: 065
     Dates: start: 20170307

REACTIONS (2)
  - Swollen tongue [Recovered/Resolved with Sequelae]
  - Angioedema [Recovering/Resolving]

NARRATIVE: CASE EVENT DATE: 20190614
